FAERS Safety Report 9295802 (Version 1)
Quarter: 2013Q2

REPORT INFORMATION
  Report Type: Spontaneous
  Country: US (occurrence: None)
  Receive Date: 20130516
  Receipt Date: 20130516
  Transmission Date: 20140414
  Serious: Yes (Hospitalization)
  Sender: FDA-Public Use
  Company Number: None

PATIENT
  Age: 60 Year
  Sex: Male
  Weight: 94.4 kg

DRUGS (1)
  1. CISPLATIN [Suspect]

REACTIONS (7)
  - Oral pain [None]
  - Mucosal inflammation [None]
  - Dysphagia [None]
  - Failure to thrive [None]
  - Odynophagia [None]
  - Atrial fibrillation [None]
  - Oxygen saturation decreased [None]
